FAERS Safety Report 16656301 (Version 1)
Quarter: 2019Q3

REPORT INFORMATION
  Report Type: Spontaneous
  Country: US (occurrence: US)
  Receive Date: 20190801
  Receipt Date: 20190801
  Transmission Date: 20191004
  Serious: No
  Sender: FDA-Public Use
  Company Number: US-PACIRA-201500105

PATIENT
  Sex: Female

DRUGS (4)
  1. BUPIVACAINE. [Suspect]
     Active Substance: BUPIVACAINE
     Indication: NERVE BLOCK
     Dosage: 150 MG, UNK, FREQUENCY : UNK
     Route: 065
  2. EXPAREL [Suspect]
     Active Substance: BUPIVACAINE
     Dosage: 20 CC, 1X (WHOLE VIAL, 266MG), FREQUENCY : 1X
     Dates: start: 20150625, end: 20150625
  3. MARCAINE [Suspect]
     Active Substance: BUPIVACAINE HYDROCHLORIDE
     Dosage: UNK UNK, UNK, FREQUENCY : UNK
     Route: 065
  4. ROPIVACAINE. [Concomitant]
     Active Substance: ROPIVACAINE HYDROCHLORIDE
     Dosage: UNK UNK, UNK, FREQUENCY : UNK
     Route: 065

REACTIONS (3)
  - Discomfort [Not Recovered/Not Resolved]
  - Pain [Not Recovered/Not Resolved]
  - Inappropriate schedule of product administration [Not Recovered/Not Resolved]

NARRATIVE: CASE EVENT DATE: 20150625
